FAERS Safety Report 11420067 (Version 1)
Quarter: 2015Q3

REPORT INFORMATION
  Report Type: Spontaneous
  Country: JP (occurrence: JP)
  Receive Date: 20150826
  Receipt Date: 20150826
  Transmission Date: 20151125
  Serious: Yes (Other)
  Sender: FDA-Public Use
  Company Number: JP-GLAXOSMITHKLINE INC.-JP2015JPN074334

PATIENT
  Sex: Female

DRUGS (1)
  1. VOTRIENT [Suspect]
     Active Substance: PAZOPANIB HYDROCHLORIDE
     Indication: RHABDOMYOSARCOMA
     Dosage: UNK
     Route: 048
     Dates: start: 20150109

REACTIONS (1)
  - Rhabdomyosarcoma [Unknown]

NARRATIVE: CASE EVENT DATE: 201505
